FAERS Safety Report 21039014 (Version 3)
Quarter: 2023Q1

REPORT INFORMATION
  Report Type: Other
  Country: GB (occurrence: GB)
  Receive Date: 20220704
  Receipt Date: 20230113
  Transmission Date: 20230418
  Serious: Yes (Life-Threatening, Hospitalization, Other)
  Sender: FDA-Public Use
  Company Number: None

PATIENT
  Age: 55 Year
  Sex: Male
  Weight: 85 kg

DRUGS (15)
  1. GABAPENTIN [Suspect]
     Active Substance: GABAPENTIN
     Indication: Spinal instability
     Dosage: 300 MILLIGRAM, TID, CAPSULE (START DATE: 2017)
     Route: 048
  2. GABAPENTIN [Suspect]
     Active Substance: GABAPENTIN
     Indication: Nerve injury
     Dosage: 900 MILLIGRAM PER DAY, CAPSULE (START DATE: 10 FEB 2017)
     Route: 048
  3. GABAPENTIN [Suspect]
     Active Substance: GABAPENTIN
     Dosage: 600 MILLIGRAM, DOSE REDUCED 900MG TO 600MG, CAPSULE (DATES: 01 NOV 2021 TO 14 NOV 2021)
     Route: 065
  4. GABAPENTIN [Suspect]
     Active Substance: GABAPENTIN
     Dosage: 400 MILLIGRAM, DOSE REDUCED 600MG TO 400MG, CAPSULE (DATES: 14 NOV 2021 TO 01 DEC 2021)
     Route: 065
  5. GABAPENTIN [Suspect]
     Active Substance: GABAPENTIN
     Dosage: 200 MILLIGRAM, DOSE REDUCED FROM 400MG TO 200MG), CAPSULE (DATES: 01 DEC 2021 TO 14 DEC 2021)
     Route: 065
  6. GABAPENTIN [Suspect]
     Active Substance: GABAPENTIN
     Dosage: 100 MILLIGRAM, DOSE REDUCED 200MG TO 100MG, CAPSULE (DATES: 14 DEC 2021 TO 09 JAN 2022)
     Route: 065
  7. GABAPENTIN [Suspect]
     Active Substance: GABAPENTIN
     Dosage: 100 MILLIGRAM, UNKNOWN, CAPSULE (STOP DATE: 09 JAN 2022)
     Route: 065
  8. DIAZEPAM [Suspect]
     Active Substance: DIAZEPAM
     Indication: Back pain
     Dosage: 2 MILLIGRAM, UNKNOWN
     Route: 065
  9. DIAZEPAM [Suspect]
     Active Substance: DIAZEPAM
     Dosage: UNK, STARTED ON 01 JAN 2011
     Route: 065
  10. LANSOPRAZOLE [Concomitant]
     Active Substance: LANSOPRAZOLE
     Indication: Product used for unknown indication
     Dosage: 15 MILLIGRAM, UNKNOWN
     Route: 065
  11. LANSOPRAZOLE [Concomitant]
     Active Substance: LANSOPRAZOLE
     Dosage: UNK, STARTED ON 01 JAN 2000
     Route: 065
  12. LEVOTHYROXINE [Concomitant]
     Active Substance: LEVOTHYROXINE
     Indication: Thyroxine decreased
     Dosage: UNK, STARTED ON 01 JAN 2000
     Route: 065
  13. LISINOPRIL [Concomitant]
     Active Substance: LISINOPRIL
     Indication: Hypertension
     Dosage: 20 MILLIGRAM, UNKNOWN
     Route: 065
  14. LISINOPRIL [Concomitant]
     Active Substance: LISINOPRIL
     Dosage: UNK, STARTED ON 01 JAN 2011
     Route: 065
  15. THYROXINE [Concomitant]
     Active Substance: LEVOTHYROXINE
     Indication: Product used for unknown indication
     Dosage: 20 MILLIGRAM, UNKNOWN
     Route: 065

REACTIONS (25)
  - Paranoia [Recovered/Resolved]
  - Pain threshold decreased [Recovered/Resolved]
  - Mental disorder [Unknown]
  - Hot flush [Unknown]
  - Deafness [Unknown]
  - Hyperacusis [Unknown]
  - Feeling of body temperature change [Unknown]
  - Photopsia [Unknown]
  - Tunnel vision [Unknown]
  - Violence-related symptom [Unknown]
  - Appendicitis [Unknown]
  - Pruritus [Unknown]
  - Palpitations [Unknown]
  - Muscle twitching [Unknown]
  - Panic attack [Unknown]
  - Restlessness [Unknown]
  - Aggression [Not Recovered/Not Resolved]
  - Decreased appetite [Unknown]
  - Depressed mood [Unknown]
  - Suicidal ideation [Unknown]
  - Headache [Unknown]
  - Nausea [Unknown]
  - Anxiety [Not Recovered/Not Resolved]
  - Depression [Unknown]
  - Off label use [Unknown]

NARRATIVE: CASE EVENT DATE: 20210318
